FAERS Safety Report 21297546 (Version 3)
Quarter: 2022Q4

REPORT INFORMATION
  Report Type: Report from Study
  Country: IN (occurrence: IN)
  Receive Date: 20220906
  Receipt Date: 20221021
  Transmission Date: 20230113
  Serious: Yes (Death, Hospitalization, Other)
  Sender: FDA-Public Use
  Company Number: IN-NOVARTISPH-NVSC2022IN198663

PATIENT
  Age: 56 Year
  Sex: Female

DRUGS (4)
  1. TACROLIMUS [Suspect]
     Active Substance: TACROLIMUS
     Indication: Renal transplant
     Dosage: 3 MG
     Route: 065
     Dates: start: 20220728
  2. TACROLIMUS [Suspect]
     Active Substance: TACROLIMUS
     Dosage: 2.0 MG
     Route: 065
     Dates: start: 2022
  3. MYFORTIC [Suspect]
     Active Substance: MYCOPHENOLATE SODIUM
     Indication: Renal transplant
     Dosage: 360 MG
     Route: 065
     Dates: start: 20220728
  4. MYFORTIC [Suspect]
     Active Substance: MYCOPHENOLATE SODIUM
     Dosage: 360 MG
     Route: 065
     Dates: start: 2022

REACTIONS (4)
  - Death [Fatal]
  - Dengue fever [Unknown]
  - Hypothyroidism [Unknown]
  - Hypertension [Unknown]

NARRATIVE: CASE EVENT DATE: 20220728
